FAERS Safety Report 5604542-2 (Version None)
Quarter: 2008Q1

REPORT INFORMATION
  Report Type: 
  Country: None (occurrence: None)
  Receive Date: 20080124
  Receipt Date: 20080124
  Transmission Date: 20080703
  Serious: Yes (Hospitalization, Disabling)
  Sender: FDA-Public Use
  Company Number: None

PATIENT
  Age: 75 Year
  Sex: Female
  Weight: 86 kg

DRUGS (13)
  1. WARFARIN SODIUM [Suspect]
     Indication: AORTIC VALVE DISEASE
     Dosage: 2.5MG DAILY PO
     Route: 048
  2. AZITHROMYCIN [Concomitant]
  3. SERTRALINE [Concomitant]
  4. LISINOPRIL [Concomitant]
  5. FUROSEMIDE [Concomitant]
  6. METOPROLOL TARTRATE [Concomitant]
  7. ASPIRIN [Concomitant]
  8. ATORVASTATIN [Concomitant]
  9. CLOPIDOGREL [Concomitant]
  10. LEVOTHYROXINE SODIUM [Concomitant]
  11. CALCIUM WITH VITAMIN D [Concomitant]
  12. DIGOXIN [Concomitant]
  13. INSULIN [Concomitant]

REACTIONS (5)
  - ANAEMIA [None]
  - ASTHENIA [None]
  - GASTROINTESTINAL HAEMORRHAGE [None]
  - INTERNATIONAL NORMALISED RATIO INCREASED [None]
  - LETHARGY [None]
